FAERS Safety Report 7253972-4 (Version None)
Quarter: 2011Q1

REPORT INFORMATION
  Report Type: 
  Country: None (occurrence: None)
  Receive Date: 20110129
  Receipt Date: 20100326
  Transmission Date: 20110831
  Serious: No
  Sender: FDA-Public Use
  Company Number: US-ABBOTT-10P-163-0635005-00

PATIENT
  Sex: Male
  Weight: 90.8 kg

DRUGS (1)
  1. HUMIRA [Suspect]
     Indication: ANKYLOSING SPONDYLITIS
     Dates: start: 20090901, end: 20100324

REACTIONS (5)
  - SKIN WARM [None]
  - RASH PRURITIC [None]
  - RASH [None]
  - URTICARIA [None]
  - SKIN BURNING SENSATION [None]
